FAERS Safety Report 24416364 (Version 1)
Quarter: 2024Q4

REPORT INFORMATION
  Report Type: Spontaneous
  Country: FR (occurrence: FR)
  Receive Date: 20241009
  Receipt Date: 20241009
  Transmission Date: 20250114
  Serious: Yes (Life-Threatening)
  Sender: PFIZER
  Company Number: None

PATIENT
  Age: 27 Year
  Sex: Male

DRUGS (10)
  1. PANTOPRAZOLE [Suspect]
     Active Substance: PANTOPRAZOLE
     Dosage: 20 MILLIGRAM, QD
     Route: 048
     Dates: end: 20240825
  2. ATROPINE [Suspect]
     Active Substance: ATROPINE
     Dosage: 4 DOSAGE FORM, QD
     Route: 031
     Dates: end: 20240825
  3. TRIMEPRAZINE [Suspect]
     Active Substance: TRIMEPRAZINE
     Indication: Insomnia
     Dosage: 30 MILLIGRAM, QD
     Route: 048
     Dates: end: 20240825
  4. VALIUM [Suspect]
     Active Substance: DIAZEPAM
     Indication: Schizophrenia
     Dosage: 120 DOSAGE FORM, QD
     Route: 048
     Dates: end: 20240825
  5. LOXAPINE SUCCINATE [Suspect]
     Active Substance: LOXAPINE SUCCINATE
     Indication: Schizophrenia
     Dosage: 4 DOSAGE FORM, QD
     Route: 048
     Dates: end: 20240825
  6. CLOZAPINE [Suspect]
     Active Substance: CLOZAPINE
     Indication: Schizophrenia
     Dosage: 200 MILLIGRAM, QD
     Route: 048
     Dates: start: 20240803, end: 20240825
  7. ZOPICLONE [Suspect]
     Active Substance: ZOPICLONE
     Indication: Insomnia
     Dosage: 7.5 MILLIGRAM, QD
     Route: 048
     Dates: end: 20240825
  8. TROPATEPINE HYDROCHLORIDE [Suspect]
     Active Substance: TROPATEPINE HYDROCHLORIDE
     Indication: Drug toxicity prophylaxis
     Dosage: 20 MILLIGRAM, QD
     Route: 048
     Dates: end: 20240825
  9. VALPROATE SODIUM [Suspect]
     Active Substance: VALPROATE SODIUM
     Indication: Schizophrenia
     Dosage: 750 MILLIGRAM, QD
     Route: 048
     Dates: end: 20240825
  10. HALDOL [Suspect]
     Active Substance: HALOPERIDOL
     Indication: Schizophrenia
     Dosage: 250 DOSAGE FORM, QD
     Route: 048
     Dates: end: 20240825

REACTIONS (3)
  - Intestinal obstruction [Not Recovered/Not Resolved]
  - Septic shock [Not Recovered/Not Resolved]
  - Large intestine perforation [Not Recovered/Not Resolved]

NARRATIVE: CASE EVENT DATE: 20240824
